FAERS Safety Report 18436642 (Version 3)
Quarter: 2020Q4

REPORT INFORMATION
  Report Type: Spontaneous
  Country: FR (occurrence: FR)
  Receive Date: 20201028
  Receipt Date: 20201218
  Transmission Date: 20210114
  Serious: Yes (Other)
  Sender: FDA-Public Use
  Company Number: FR-TEVA-2020-FR-1842954

PATIENT
  Age: 53 Year
  Sex: Female

DRUGS (3)
  1. SOLUPRED [Concomitant]
     Indication: PRE-EXISTING DISEASE
  2. ESTREVA [Suspect]
     Active Substance: ESTRADIOL
     Indication: HOT FLUSH
     Dosage: 2 X DOSES A DAY, BUT STARTED WITH 3 X DOSES A DAY
     Route: 065
     Dates: start: 202009, end: 20201022
  3. AERIUS [Concomitant]
     Indication: HYPERSENSITIVITY

REACTIONS (5)
  - Off label use [Unknown]
  - Suspected COVID-19 [Unknown]
  - Headache [Not Recovered/Not Resolved]
  - Deafness [Unknown]
  - Breast discomfort [Not Recovered/Not Resolved]

NARRATIVE: CASE EVENT DATE: 202008
